FAERS Safety Report 7592970-8 (Version None)
Quarter: 2011Q3

REPORT INFORMATION
  Report Type: 
  Country: None (occurrence: None)
  Receive Date: 20110706
  Receipt Date: 20110629
  Transmission Date: 20111222
  Serious: Yes (Other)
  Sender: FDA-Public Use
  Company Number: US-GLAXOSMITHKLINE-A0933884A

PATIENT
  Age: 52 Year
  Sex: Male

DRUGS (3)
  1. CIPROFLOXACIN HCL [Concomitant]
     Dosage: 750MG TWICE PER DAY
     Dates: start: 20110425
  2. SODIUM CHLORIDE [Concomitant]
     Indication: PRODUCT USED FOR UNKNOWN INDICATION
     Route: 045
  3. BACTROBAN [Suspect]
     Indication: PRODUCT USED FOR UNKNOWN INDICATION
     Route: 045
     Dates: start: 20110425

REACTIONS (1)
  - PANCREATITIS [None]
